FAERS Safety Report 18452684 (Version 3)
Quarter: 2021Q1

REPORT INFORMATION
  Report Type: Report from Study
  Country: US (occurrence: US)
  Receive Date: 20201102
  Receipt Date: 20210223
  Transmission Date: 20210419
  Serious: Yes (Hospitalization)
  Sender: FDA-Public Use
  Company Number: US-ELI_LILLY_AND_COMPANY-US202010008263

PATIENT
  Sex: Female

DRUGS (3)
  1. IRON [Concomitant]
     Active Substance: IRON
     Indication: IRON DEFICIENCY
  2. OLUMIANT [Suspect]
     Active Substance: BARICITINIB
     Dosage: 2 MG, UNKNOWN
     Route: 048
     Dates: start: 2017
  3. OLUMIANT [Suspect]
     Active Substance: BARICITINIB
     Indication: RHEUMATOID ARTHRITIS
     Dosage: 2 MG, UNKNOWN
     Route: 048
     Dates: start: 2017

REACTIONS (7)
  - Upper respiratory tract infection [Recovering/Resolving]
  - Amnesia [Unknown]
  - Immune system disorder [Unknown]
  - Malaise [Unknown]
  - Full blood count decreased [Recovering/Resolving]
  - Gastric ulcer [Not Recovered/Not Resolved]
  - Spinal fracture [Recovering/Resolving]
